FAERS Safety Report 17254212 (Version 6)
Quarter: 2020Q1

REPORT INFORMATION
  Report Type: Spontaneous
  Country: CZ (occurrence: CZ)
  Receive Date: 20200109
  Receipt Date: 20200304
  Transmission Date: 20200409
  Serious: Yes (Death, Life-Threatening, Other)
  Sender: FDA-Public Use
  Company Number: CZ-MYLANLABS-2020M1002035

PATIENT
  Age: 50 Year
  Sex: Male

DRUGS (13)
  1. DEXAMETHASONE. [Suspect]
     Active Substance: DEXAMETHASONE
     Indication: CHRONIC LYMPHOCYTIC LEUKAEMIA
     Dosage: UNK
     Route: 065
  2. PREDNISONE. [Suspect]
     Active Substance: PREDNISONE
     Indication: PRODUCT USED FOR UNKNOWN INDICATION
     Dosage: UNK, PART OF R-CHOP
     Route: 065
  3. PREDNISOLONE. [Suspect]
     Active Substance: PREDNISOLONE
     Dosage: UNK, PART OF R-CHOP
     Route: 065
  4. CYCLOPHOSPHAMIDE. [Suspect]
     Active Substance: CYCLOPHOSPHAMIDE
     Indication: CHRONIC LYMPHOCYTIC LEUKAEMIA
     Dosage: UNK
     Route: 065
  5. RITUXIMAB. [Suspect]
     Active Substance: RITUXIMAB
     Dosage: UNK
     Route: 065
  6. BENDAMUSTINE HYDROCHLORIDE. [Suspect]
     Active Substance: BENDAMUSTINE HYDROCHLORIDE
     Indication: CHRONIC LYMPHOCYTIC LEUKAEMIA
     Dosage: UNK
     Route: 065
  7. PREDNISOLONE. [Suspect]
     Active Substance: PREDNISOLONE
     Indication: CHRONIC LYMPHOCYTIC LEUKAEMIA
     Dosage: UNK,
     Route: 065
  8. DOXORUBICIN [Suspect]
     Active Substance: DOXORUBICIN
     Indication: CHRONIC LYMPHOCYTIC LEUKAEMIA
     Dosage: UNK PART OF R-CHOP
     Route: 065
  9. RITUXIMAB. [Suspect]
     Active Substance: RITUXIMAB
     Indication: CHRONIC LYMPHOCYTIC LEUKAEMIA
     Dosage: UNK PREVIOUSLY PART OF FCR REGIMEN (FLUDARABINE, CYCLOPHOSPHAMIDE,RITUXIMAB)
     Route: 065
  10. FLUDARABINE                        /01004602/ [Suspect]
     Active Substance: FLUDARABINE PHOSPHATE
     Indication: CHRONIC LYMPHOCYTIC LEUKAEMIA
     Dosage: UNK
     Route: 065
  11. CYCLOPHOSPHAMIDE. [Suspect]
     Active Substance: CYCLOPHOSPHAMIDE
     Dosage: UNK PREVIOUSLY PART OF FCR REGIMEN (FLUDARABINE, CYCLOPHOSPHAMIDE,RITUXIMAB)
     Route: 065
  12. VINCRISTIN [Suspect]
     Active Substance: VINCRISTINE
     Indication: CHRONIC LYMPHOCYTIC LEUKAEMIA
     Dosage: UNK, PART OF R-CHOP
     Route: 065
  13. GEMCITABINE. [Suspect]
     Active Substance: GEMCITABINE
     Indication: CHRONIC LYMPHOCYTIC LEUKAEMIA
     Dosage: UNK
     Route: 065

REACTIONS (15)
  - Night sweats [Unknown]
  - Malignant neoplasm progression [Recovering/Resolving]
  - Neutropenic sepsis [Fatal]
  - Chronic lymphocytic leukaemia transformation [Unknown]
  - Drug ineffective [Fatal]
  - Richter^s syndrome [Fatal]
  - Treatment failure [Unknown]
  - Abdominal lymphadenopathy [Recovering/Resolving]
  - Product use in unapproved indication [Unknown]
  - Thrombocytopenia [Fatal]
  - Chronic lymphocytic leukaemia [Recovering/Resolving]
  - Condition aggravated [Fatal]
  - Chronic lymphocytic leukaemia recurrent [Unknown]
  - Chronic lymphocytic leukaemia refractory [Unknown]
  - Off label use [Unknown]

NARRATIVE: CASE EVENT DATE: 201110
